FAERS Safety Report 19093431 (Version 4)
Quarter: 2021Q2

REPORT INFORMATION
  Report Type: Spontaneous
  Country: GB (occurrence: GB)
  Receive Date: 20210405
  Receipt Date: 20210412
  Transmission Date: 20210717
  Serious: Yes (Life-Threatening, Hospitalization, Other)
  Sender: FDA-Public Use
  Company Number: GB-SA-2021SA110582

PATIENT
  Age: 40 Year
  Sex: Male

DRUGS (3)
  1. CAPECITABINE. [Suspect]
     Active Substance: CAPECITABINE
     Indication: ADENOCARCINOMA OF COLON
     Dosage: 20 G CUMULATIVE DOSE
     Route: 048
  2. OXALIPLATIN. [Suspect]
     Active Substance: OXALIPLATIN
     Indication: ADENOCARCINOMA OF COLON
     Dosage: 250 MG AS AN INFUSION
     Route: 042
  3. METOPROLOL SALT NOT SPECIFIED [Suspect]
     Active Substance: METOPROLOL
     Indication: HEART RATE ABNORMAL
     Dosage: 30 MG
     Route: 040

REACTIONS (19)
  - Cardiotoxicity [Recovering/Resolving]
  - Haemodynamic instability [Recovering/Resolving]
  - Chest discomfort [Recovering/Resolving]
  - Dysarthria [Recovering/Resolving]
  - Disorientation [Unknown]
  - Dyspnoea [Recovering/Resolving]
  - Electrocardiogram ST segment elevation [Recovering/Resolving]
  - Aphasia [Recovering/Resolving]
  - Dysphagia [Recovering/Resolving]
  - Left ventricular hypertrophy [Recovering/Resolving]
  - Pulmonary embolism [Recovering/Resolving]
  - Toxic leukoencephalopathy [Recovering/Resolving]
  - Neurotoxicity [Recovering/Resolving]
  - Ventricular hypokinesia [Recovering/Resolving]
  - Left ventricular dysfunction [Recovered/Resolved]
  - Chest pain [Recovering/Resolving]
  - Malaise [Recovered/Resolved]
  - Hypotension [Recovered/Resolved]
  - Arteriospasm coronary [Recovered/Resolved]
